FAERS Safety Report 4806955-5 (Version None)
Quarter: 2005Q4

REPORT INFORMATION
  Report Type: 
  Country: None (occurrence: None)
  Receive Date: 20051024
  Receipt Date: 20051012
  Transmission Date: 20060501
  Serious: Yes (Other)
  Sender: FDA-Public Use
  Company Number: US-BRISTOL-MYERS SQUIBB COMPANY-13142401

PATIENT
  Age: 71 Year
  Sex: Male

DRUGS (1)
  1. DEFINITY [Suspect]
     Route: 040
     Dates: start: 20051011, end: 20051011

REACTIONS (1)
  - VENTRICULAR TACHYCARDIA [None]
